FAERS Safety Report 5887560-9 (Version None)
Quarter: 2008Q3

REPORT INFORMATION
  Report Type: 
  Country: None (occurrence: None)
  Receive Date: 20080918
  Receipt Date: 20080911
  Transmission Date: 20090109
  Serious: Yes (Life-Threatening, Other)
  Sender: FDA-Public Use
  Company Number: PHHY2008BR21215

PATIENT
  Sex: Female
  Weight: 65 kg

DRUGS (12)
  1. FORASEQ [Suspect]
     Indication: EMPHYSEMA
     Dosage: 12/400 MCG, TWICE A DAY
  2. FORASEQ [Suspect]
     Indication: BRONCHITIS
  3. METICORTEN [Concomitant]
     Indication: EMPHYSEMA
     Dosage: 5 MG, QD
     Route: 048
  4. METICORTEN [Concomitant]
     Indication: BRONCHITIS
  5. THEOLONG [Concomitant]
     Indication: EMPHYSEMA
     Dosage: 200 MG/DAY
     Route: 048
  6. THEOLONG [Concomitant]
     Indication: BRONCHITIS
  7. ATROVENT [Concomitant]
     Indication: EMPHYSEMA
     Dosage: 15-20 DROPS
  8. ATROVENT [Concomitant]
     Indication: BRONCHITIS
  9. SPIRIVA [Concomitant]
     Indication: EMPHYSEMA
     Dosage: UNK
  10. SPIRIVA [Concomitant]
     Indication: BRONCHITIS
  11. ACTONEL [Concomitant]
     Indication: OSTEOPOROSIS
  12. OS-CAL [Concomitant]
     Indication: OSTEOPOROSIS

REACTIONS (6)
  - COUGH [None]
  - FEELING ABNORMAL [None]
  - HEAD INJURY [None]
  - OSTEOPOROSIS [None]
  - SPINAL FRACTURE [None]
  - VERTEBROPLASTY [None]
